FAERS Safety Report 10257516 (Version 1)
Quarter: 2014Q2

REPORT INFORMATION
  Report Type: Spontaneous
  Country: US (occurrence: US)
  Receive Date: 20140625
  Receipt Date: 20140625
  Transmission Date: 20141212
  Serious: No
  Sender: FDA-Public Use
  Company Number: US-GLAXOSMITHKLINE-A1060818A

PATIENT
  Sex: Female

DRUGS (3)
  1. VERAMYST [Suspect]
     Indication: EAR CONGESTION
     Dosage: 1SPR PER DAY
     Route: 045
     Dates: start: 2012
  2. ZYRTEC [Concomitant]
  3. UNSPECIFIED MEDICATION [Concomitant]
     Indication: COLITIS

REACTIONS (2)
  - Upper respiratory tract infection [Not Recovered/Not Resolved]
  - Pyrexia [Recovered/Resolved]
